FAERS Safety Report 10189856 (Version 1)
Quarter: 2014Q2

REPORT INFORMATION
  Report Type: Spontaneous
  Country: US (occurrence: US)
  Receive Date: 20140522
  Receipt Date: 20140522
  Transmission Date: 20141212
  Serious: Yes (Other)
  Sender: FDA-Public Use
  Company Number: US-SA-2013SA136161

PATIENT
  Age: 57 Year
  Sex: Male

DRUGS (3)
  1. LANTUS SOLOSTAR [Suspect]
     Indication: TYPE 1 DIABETES MELLITUS
     Dosage: DOSE:12 UNIT(S)
     Route: 051
  2. SOLOSTAR [Suspect]
     Indication: TYPE 1 DIABETES MELLITUS
  3. HUMALOG [Suspect]
     Route: 065

REACTIONS (6)
  - Cataract [Recovering/Resolving]
  - Visual impairment [Recovering/Resolving]
  - Injection site pruritus [Unknown]
  - Injection site rash [Unknown]
  - Wrong technique in drug usage process [Unknown]
  - Wrong drug administered [Unknown]
